FAERS Safety Report 21733216 (Version 1)
Quarter: 2022Q4

REPORT INFORMATION
  Report Type: Spontaneous
  Country: FR (occurrence: FR)
  Receive Date: 20221215
  Receipt Date: 20221215
  Transmission Date: 20230112
  Serious: Yes (Hospitalization)
  Sender: FDA-Public Use
  Company Number: None

PATIENT
  Age: 75 Year
  Sex: Female
  Weight: 66 kg

DRUGS (14)
  1. ELIQUIS [Suspect]
     Active Substance: APIXABAN
     Indication: Cerebrovascular accident prophylaxis
     Dosage: 2.5 MG
     Route: 048
     Dates: end: 20220509
  2. CALCIPARINE [Suspect]
     Active Substance: HEPARIN CALCIUM
     Indication: Atrial fibrillation
     Route: 003
     Dates: start: 20220509, end: 20220515
  3. AMIKACIN [Suspect]
     Active Substance: AMIKACIN
     Indication: Pyelonephritis acute
     Route: 042
     Dates: start: 20220509, end: 20220509
  4. PANTOPRAZOLE [Suspect]
     Active Substance: PANTOPRAZOLE
     Indication: Gastrooesophageal reflux disease
  5. CLARITHROMYCIN [Suspect]
     Active Substance: CLARITHROMYCIN
     Indication: Lung disorder
     Dosage: 500 MG
     Dates: start: 20220510, end: 20220512
  6. CEFTRIAXONE SODIUM [Suspect]
     Active Substance: CEFTRIAXONE SODIUM
     Indication: Pyelonephritis acute
     Route: 042
     Dates: start: 20220508, end: 20220512
  7. PIVMECILLINAM HYDROCHLORIDE [Suspect]
     Active Substance: PIVMECILLINAM HYDROCHLORIDE
     Indication: Pyelonephritis acute
     Route: 048
     Dates: start: 20220506, end: 20220508
  8. LEVOTHYROXINE [Concomitant]
     Active Substance: LEVOTHYROXINE
     Indication: Product used for unknown indication
  9. ROWASA [Concomitant]
     Active Substance: MESALAMINE
     Indication: Product used for unknown indication
  10. AMOXICILLIN\CLAVULANATE POTASSIUM [Concomitant]
     Active Substance: AMOXICILLIN\CLAVULANATE POTASSIUM
     Indication: Product used for unknown indication
  11. URAPIDIL HYDROCHLORIDE [Concomitant]
     Active Substance: URAPIDIL HYDROCHLORIDE
     Indication: Product used for unknown indication
  12. FOSFOMYCIN TROMETHAMINE [Concomitant]
     Active Substance: FOSFOMYCIN TROMETHAMINE
     Indication: Product used for unknown indication
  13. FUROSEMIDE [Concomitant]
     Active Substance: FUROSEMIDE
     Indication: Product used for unknown indication
  14. BISOPROLOL FUMARATE [Concomitant]
     Active Substance: BISOPROLOL FUMARATE
     Indication: Product used for unknown indication

REACTIONS (1)
  - Hepatic enzyme increased [Recovering/Resolving]

NARRATIVE: CASE EVENT DATE: 20220511
